FAERS Safety Report 8022201-6 (Version None)
Quarter: 2012Q1

REPORT INFORMATION
  Report Type: 
  Country: None (occurrence: None)
  Receive Date: 20120104
  Receipt Date: 20111229
  Transmission Date: 20120608
  Serious: Yes (Other)
  Sender: FDA-Public Use
  Company Number: US-BAYER-2011-098521

PATIENT
  Age: 24 Year
  Sex: Female
  Weight: 65.306 kg

DRUGS (1)
  1. MIRENA [Suspect]
     Indication: CONTRACEPTION
     Dosage: 20 MCG/24HR, CONT
     Route: 015
     Dates: start: 20080108, end: 20110830

REACTIONS (2)
  - UTERINE PERFORATION [None]
  - PREGNANCY WITH CONTRACEPTIVE DEVICE [None]
